FAERS Safety Report 10854328 (Version 1)
Quarter: 2015Q1

REPORT INFORMATION
  Report Type: Spontaneous
  Country: GB (occurrence: None)
  Receive Date: 20150218
  Receipt Date: 20150218
  Transmission Date: 20150721
  Serious: Yes (Other)
  Sender: FDA-Public Use
  Company Number: GB-DEXPHARM-20150110

PATIENT
  Age: 85 Year
  Sex: Female
  Weight: 68 kg

DRUGS (4)
  1. ATENOLOL. [Concomitant]
     Active Substance: ATENOLOL
  2. CANDESARTAN [Concomitant]
     Active Substance: CANDESARTAN
  3. LERCANIDIPINE [Concomitant]
     Active Substance: LERCANIDIPINE
  4. CHIROCAINE [Suspect]
     Active Substance: LEVOBUPIVACAINE HYDROCHLORIDE
     Indication: EPIDURAL ANAESTHESIA
     Dosage: GRADULA EPID. TOP UP TO 10 ML 0.5%
     Route: 008

REACTIONS (3)
  - Mental status changes [None]
  - Confusion postoperative [None]
  - Metabolic alkalosis [None]

NARRATIVE: CASE EVENT DATE: 20150116
